FAERS Safety Report 16059827 (Version 2)
Quarter: 2019Q2

REPORT INFORMATION
  Report Type: Spontaneous
  Country: IT (occurrence: IT)
  Receive Date: 20190311
  Receipt Date: 20190607
  Transmission Date: 20190711
  Serious: Yes (Hospitalization)
  Sender: FDA-Public Use
  Company Number: IT-LUNDBECK-DKLU2061629

PATIENT
  Age: 43 Year
  Sex: Male

DRUGS (2)
  1. TEGRETOL [Suspect]
     Active Substance: CARBAMAZEPINE
     Indication: ANXIETY
     Dosage: OVERDOSE: 8 G TOTAL
     Route: 048
     Dates: start: 20190219, end: 20190219
  2. FRISIUM [Suspect]
     Active Substance: CLOBAZAM
     Indication: ANXIETY
     Dosage: OVERDOSE: 300 MG TOTAL
     Route: 048
     Dates: start: 20190219, end: 20190219

REACTIONS (4)
  - Substance abuse [Recovering/Resolving]
  - Overdose [Unknown]
  - Somnolence [Recovering/Resolving]
  - Anxiety [Recovering/Resolving]

NARRATIVE: CASE EVENT DATE: 20190219
